FAERS Safety Report 6051850-X (Version None)
Quarter: 2009Q1

REPORT INFORMATION
  Report Type: 
  Country: None (occurrence: None)
  Receive Date: 20090121
  Receipt Date: 20090121
  Transmission Date: 20090719
  Serious: Yes (Life-Threatening, Hospitalization)
  Sender: FDA-Public Use
  Company Number: None

PATIENT
  Sex: Female
  Weight: 68.0396 kg

DRUGS (2)
  1. HEPARIN [Suspect]
     Indication: BONE GRAFT
     Dosage: 900 ONCE IV
     Route: 042
     Dates: start: 20080211
  2. HEPARIN [Suspect]
     Indication: HIP SURGERY
     Dosage: 900 ONCE IV
     Route: 042
     Dates: start: 20080211

REACTIONS (8)
  - ALTERED STATE OF CONSCIOUSNESS [None]
  - ANAPHYLACTIC SHOCK [None]
  - BLOOD PRESSURE IMMEASURABLE [None]
  - HYPOTENSION [None]
  - MEMORY IMPAIRMENT [None]
  - PRODUCT CONTAMINATION [None]
  - PRODUCT QUALITY ISSUE [None]
  - PULSE ABSENT [None]
